FAERS Safety Report 17590262 (Version 1)
Quarter: 2020Q1

REPORT INFORMATION
  Report Type: Spontaneous
  Country: US (occurrence: US)
  Receive Date: 20200326
  Receipt Date: 20200326
  Transmission Date: 20200409
  Serious: Yes (Other)
  Sender: FDA-Public Use
  Company Number: None

PATIENT
  Age: 65 Year
  Sex: Male
  Weight: 74 kg

DRUGS (16)
  1. ATENOLOL. [Concomitant]
     Active Substance: ATENOLOL
  2. OMEPRAZOLE. [Concomitant]
     Active Substance: OMEPRAZOLE
  3. FERROUS SULFATE. [Concomitant]
     Active Substance: FERROUS SULFATE
  4. LOPERAMIDE [Concomitant]
     Active Substance: LOPERAMIDE
  5. TACROLIMUS. [Concomitant]
     Active Substance: TACROLIMUS
  6. HUMALOG [Concomitant]
     Active Substance: INSULIN LISPRO
  7. MYCOPHENOLATE [Concomitant]
     Active Substance: MYCOPHENOLIC ACID
  8. MAVYRET [Suspect]
     Active Substance: GLECAPREVIR\PIBRENTASVIR
     Indication: VIRAEMIA
     Route: 048
  9. PREDNISONE. [Concomitant]
     Active Substance: PREDNISONE
  10. ATOVAQUONE. [Concomitant]
     Active Substance: ATOVAQUONE
  11. MAVYRET [Suspect]
     Active Substance: GLECAPREVIR\PIBRENTASVIR
     Indication: HEPATITIS C
     Route: 048
  12. AMLODIPINE [Concomitant]
     Active Substance: AMLODIPINE BESYLATE
  13. PSYLLIUM [Concomitant]
     Active Substance: PLANTAGO SEED
  14. OXYCODONE [Concomitant]
     Active Substance: OXYCODONE
  15. SERTRALINE [Concomitant]
     Active Substance: SERTRALINE HYDROCHLORIDE
  16. GABAPENTIN. [Concomitant]
     Active Substance: GABAPENTIN

REACTIONS (6)
  - Blood bilirubin increased [None]
  - Aspartate aminotransferase increased [None]
  - Blood alkaline phosphatase increased [None]
  - Renal transplant [None]
  - Transmission of an infectious agent via transplant [None]
  - Alanine aminotransferase increased [None]

NARRATIVE: CASE EVENT DATE: 20200216
